FAERS Safety Report 7481294-5 (Version None)
Quarter: 2011Q2

REPORT INFORMATION
  Report Type: 
  Country: None (occurrence: None)
  Receive Date: 20110506
  Receipt Date: 20110425
  Transmission Date: 20111010
  Serious: Yes (Death)
  Sender: FDA-Public Use
  Company Number: 2011040111

PATIENT
  Age: 50 Year
  Sex: Male

DRUGS (7)
  1. MORPHINE [Concomitant]
  2. OXYCODONE HCL [Concomitant]
  3. DILAUDID [Concomitant]
  4. MORPHINE ER (MORPHINE) [Concomitant]
  5. ONSOLIS [Suspect]
     Indication: CANCER PAIN
     Dosage: TITRATED UP TO 4-200 MCG FILMS (EVERY 2 HOURS MAXIMUM 4 DOSES DAILY), BU
     Route: 002
     Dates: start: 20091101, end: 20091119
  6. ONSOLIS [Suspect]
     Indication: BREAKTHROUGH PAIN
     Dosage: TITRATED UP TO 4-200 MCG FILMS (EVERY 2 HOURS MAXIMUM 4 DOSES DAILY), BU
     Route: 002
     Dates: start: 20091101, end: 20091119
  7. OXYCONTIN [Concomitant]

REACTIONS (2)
  - DRUG INEFFECTIVE [None]
  - NAUSEA [None]
